FAERS Safety Report 23767832 (Version 1)
Quarter: 2024Q2

REPORT INFORMATION
  Report Type: Spontaneous
  Country: US (occurrence: US)
  Receive Date: 20240422
  Receipt Date: 20240422
  Transmission Date: 20240716
  Serious: No
  Sender: FDA-Public Use
  Company Number: US-PADAGIS-2024PAD00608

PATIENT

DRUGS (1)
  1. ESTRADIOL VAGINAL [Suspect]
     Active Substance: ESTRADIOL
     Indication: Product used for unknown indication
     Dosage: APPLY PEA-SIZED AMOUNT WITH FINGER AT BEDTIME
     Route: 065
     Dates: start: 202403

REACTIONS (3)
  - Application site haemorrhage [Unknown]
  - Incorrect dose administered [Unknown]
  - Product use issue [Unknown]

NARRATIVE: CASE EVENT DATE: 20240301
